FAERS Safety Report 7403141-X (Version None)
Quarter: 2011Q1

REPORT INFORMATION
  Report Type: 
  Country: None (occurrence: None)
  Receive Date: 20110330
  Receipt Date: 20110322
  Transmission Date: 20110831
  Serious: Yes (Other)
  Sender: FDA-Public Use
  Company Number: 114601

PATIENT
  Age: 16 Year
  Sex: Female
  Weight: 63.5036 kg

DRUGS (9)
  1. METHOTREXATE [Suspect]
     Indication: ARTHRITIS
     Dosage: 1ML (25MG) / ONCE A WEEK / SUBCUTANEOUS
     Route: 058
     Dates: start: 20100901
  2. TRAZODONE HCL [Concomitant]
  3. ENBREL [Concomitant]
  4. RELAFEN [Concomitant]
  5. LEUCOVORIN [Concomitant]
  6. MULTI-VITAMINS [Concomitant]
  7. PREDNISONE [Concomitant]
  8. LEXAPRO [Concomitant]
  9. KAPIDEX [Concomitant]

REACTIONS (1)
  - MEDICATION ERROR [None]
